FAERS Safety Report 15578070 (Version 3)
Quarter: 2019Q1

REPORT INFORMATION
  Report Type: Spontaneous
  Country: AT (occurrence: AT)
  Receive Date: 20181102
  Receipt Date: 20190130
  Transmission Date: 20190417
  Serious: Yes (Hospitalization, Other)
  Sender: FDA-Public Use
  Company Number: AT-ACCORD-090524

PATIENT
  Age: 61 Year
  Sex: Male
  Weight: 68.5 kg

DRUGS (14)
  1. SERTRALINE [Suspect]
     Active Substance: SERTRALINE HYDROCHLORIDE
     Indication: HYPONATRAEMIA
     Route: 048
     Dates: start: 20160530, end: 20160607
  2. HUMULUS LUPULUS [Concomitant]
     Active Substance: HOPS
     Indication: PRODUCT USED FOR UNKNOWN INDICATION
     Route: 048
  3. LYRICA [Concomitant]
     Active Substance: PREGABALIN
     Dosage: 50 MG FROM 25-MAY-2016 TO 27-MAY-2016, 125 MG FROM 29-MAY-2016 TO 01-JUN-2016
     Route: 048
     Dates: start: 20160528, end: 20160528
  4. PANTOLOC [Suspect]
     Active Substance: PANTOPRAZOLE SODIUM
     Indication: PRODUCT USED FOR UNKNOWN INDICATION
     Dosage: DRUG WITHDRAWN
     Route: 048
     Dates: start: 20160505, end: 20160510
  5. LACTOBACILLUS ACIDOPHILUS [Concomitant]
     Active Substance: LACTOBACILLUS ACIDOPHILUS
     Dates: start: 20160611, end: 20160621
  6. OXCARBAZEPINE. [Concomitant]
     Active Substance: OXCARBAZEPINE
     Indication: PRODUCT USED FOR UNKNOWN INDICATION
     Route: 048
  7. OLEOVIT [Concomitant]
     Route: 048
     Dates: start: 20160509
  8. TRAZODONE [Concomitant]
     Active Substance: TRAZODONE HYDROCHLORIDE
     Indication: PRODUCT USED FOR UNKNOWN INDICATION
     Route: 048
  9. ESCITALOPRAM [Concomitant]
     Active Substance: ESCITALOPRAM OXALATE
     Indication: PRODUCT USED FOR UNKNOWN INDICATION
     Route: 065
  10. METOHEXAL [Concomitant]
     Active Substance: METOPROLOL
     Dosage: SINCE A LONG TIME
     Route: 048
  11. MEPRIL [Concomitant]
     Dosage: SINCE A LONG TIME
     Route: 048
  12. SEROQUEL [Concomitant]
     Active Substance: QUETIAPINE FUMARATE
     Dosage: 200 MG FROM 10-MAY-2016 TO 16-MAY-2016, 400 MG FROM 03-JUN-2016 TO 08-JUN-2016,
     Route: 048
     Dates: start: 20160609, end: 20160609
  13. RISPERDAL [Suspect]
     Active Substance: RISPERIDONE
     Indication: PRODUCT USED FOR UNKNOWN INDICATION
     Route: 048
  14. RISPERIDONE. [Concomitant]
     Active Substance: RISPERIDONE
     Dosage: FROM 29-JUN-2016 TO ?29-JUN-2016, FROM 27-JUN-2016 TO 27-JUN-2016.
     Route: 048
     Dates: start: 20160610, end: 20160619

REACTIONS (2)
  - Off label use [Unknown]
  - Colitis microscopic [Recovered/Resolved]

NARRATIVE: CASE EVENT DATE: 20160610
